FAERS Safety Report 4404271-7 (Version None)
Quarter: 2004Q3

REPORT INFORMATION
  Report Type: 
  Country: None (occurrence: None)
  Receive Date: 20040720
  Receipt Date: 20040707
  Transmission Date: 20050211
  Serious: Yes (Life-Threatening)
  Sender: FDA-Public Use
  Company Number: 2004045653

PATIENT
  Age: 53 Year
  Sex: Female

DRUGS (12)
  1. VFEND [Suspect]
     Indication: ILL-DEFINED DISORDER
     Dosage: 800 MG (400 MG, 2 IN 1 D) INTRAVENOUS - SEE IMAGE
     Route: 042
     Dates: start: 20040613, end: 20040614
  2. VFEND [Suspect]
     Indication: ILL-DEFINED DISORDER
     Dosage: 800 MG (400 MG, 2 IN 1 D) INTRAVENOUS - SEE IMAGE
     Route: 042
     Dates: start: 20040615
  3. TRANEXAMIC ACID (TRANEXAMIC ACID) [Concomitant]
  4. ALL OTHER THERAPEUTIC PRODUCTS (ALL OTHER THERAPEUTIC PRODUCTS) [Concomitant]
  5. BLEOMYCIN [Concomitant]
  6. ACYCLOVIR [Concomitant]
  7. MEROPENEM (MEROPENEM) [Concomitant]
  8. PANTOPRAZOLE SODIUM [Concomitant]
  9. INSULIN [Concomitant]
  10. POTASSIUM CHLORIDE [Concomitant]
  11. FENTANYL [Concomitant]
  12. SODIUM CHLORIDE 0.9% [Concomitant]

REACTIONS (2)
  - BRADYCARDIA [None]
  - CARDIAC ARREST [None]
